FAERS Safety Report 18551377 (Version 4)
Quarter: 2022Q1

REPORT INFORMATION
  Report Type: Spontaneous
  Country: JP (occurrence: JP)
  Receive Date: 20201126
  Receipt Date: 20220315
  Transmission Date: 20220423
  Serious: Yes (Hospitalization, Other)
  Sender: FDA-Public Use
  Company Number: None

PATIENT
  Age: 49 Year
  Sex: Female

DRUGS (3)
  1. ILARIS [Suspect]
     Active Substance: CANAKINUMAB
     Indication: Familial mediterranean fever
     Dosage: 150 MG
     Route: 058
     Dates: start: 20190425
  2. ILARIS [Suspect]
     Active Substance: CANAKINUMAB
     Dosage: 150 MG
     Route: 058
     Dates: start: 20190516
  3. ILARIS [Suspect]
     Active Substance: CANAKINUMAB
     Dosage: 150 MG
     Route: 058

REACTIONS (11)
  - Behcet^s syndrome [Unknown]
  - Vulval ulceration [Recovering/Resolving]
  - Arthralgia [Recovering/Resolving]
  - Aphthous ulcer [Recovering/Resolving]
  - Dermatitis acneiform [Unknown]
  - Scar [Unknown]
  - Inflammation [Recovered/Resolved]
  - Deep vein thrombosis [Unknown]
  - Large intestine erosion [Unknown]
  - Arthritis [Unknown]
  - Menstruation irregular [Recovered/Resolved]
